FAERS Safety Report 7367298-1 (Version None)
Quarter: 2011Q1

REPORT INFORMATION
  Report Type: 
  Country: None (occurrence: None)
  Receive Date: 20110316
  Receipt Date: 20110316
  Transmission Date: 20110831
  Serious: Yes (Other)
  Sender: FDA-Public Use
  Company Number: None

PATIENT
  Sex: Male
  Weight: 81.8 kg

DRUGS (2)
  1. TRIAD ALCOHOL WIPES TRIAD [Suspect]
     Indication: INJECTION
     Dosage: DAILY
     Dates: start: 20100623
  2. TRIAD ALCOHOL WIPES TRIAD [Suspect]
     Indication: INJECTION
     Dosage: DAILY
     Dates: start: 20100624

REACTIONS (10)
  - INJECTION SITE PAIN [None]
  - INJECTION SITE REACTION [None]
  - SWELLING [None]
  - HAEMORRHAGE [None]
  - PAIN [None]
  - ALOPECIA [None]
  - PRODUCT QUALITY ISSUE [None]
  - SKIN REACTION [None]
  - CONTUSION [None]
  - WOUND SECRETION [None]
